FAERS Safety Report 20103470 (Version 1)
Quarter: 2021Q4

REPORT INFORMATION
  Report Type: Spontaneous
  Country: CN (occurrence: CN)
  Receive Date: 20211123
  Receipt Date: 20211123
  Transmission Date: 20220303
  Serious: Yes (Other)
  Sender: FDA-Public Use
  Company Number: CN-PFIZER INC-202101566531

PATIENT
  Age: 44 Year
  Sex: Female
  Weight: 42 kg

DRUGS (10)
  1. EPIRUBICIN [Suspect]
     Active Substance: EPIRUBICIN
     Indication: Breast cancer
     Dosage: 110  MG, 1X/DAY
     Route: 041
     Dates: start: 20211026, end: 20211026
  2. CYCLOPHOSPHAMIDE [Suspect]
     Active Substance: CYCLOPHOSPHAMIDE
     Indication: Breast cancer
     Dosage: 0.700 G, 1X/DAY
     Route: 041
     Dates: start: 20211026, end: 20211026
  3. SODIUM CHLORIDE [Concomitant]
     Active Substance: SODIUM CHLORIDE
     Indication: Vehicle solution use
     Dosage: 5 ML
     Route: 041
     Dates: start: 20211026, end: 20211026
  4. SODIUM CHLORIDE [Concomitant]
     Active Substance: SODIUM CHLORIDE
     Dosage: 100 ML
     Route: 041
     Dates: start: 20211026, end: 20211026
  5. SODIUM CHLORIDE [Concomitant]
     Active Substance: SODIUM CHLORIDE
     Dosage: 100 ML, 1X/DAY
     Route: 041
     Dates: start: 20211026, end: 20211026
  6. TROPISETRON [Concomitant]
     Active Substance: TROPISETRON
     Indication: Prophylaxis of nausea and vomiting
     Dosage: 5 MG (BEFORE CHEMOTHERAPY)
     Route: 041
     Dates: start: 20211026, end: 20211026
  7. TROPISETRON [Concomitant]
     Active Substance: TROPISETRON
     Dosage: 5 MG (AFTER CHEMOTHERAPY)
     Route: 041
     Dates: start: 20211026, end: 20211026
  8. DEXAMETHASONE [Concomitant]
     Active Substance: DEXAMETHASONE
     Indication: Prophylaxis of nausea and vomiting
     Dosage: 5 MG (BEFORE CHEMOTHERAPY)
     Route: 041
     Dates: start: 20211026, end: 20211026
  9. DEXAMETHASONE [Concomitant]
     Active Substance: DEXAMETHASONE
     Dosage: 5 MG (AFTER CHEMOTHERAPY)
     Route: 041
     Dates: start: 20211026, end: 20211026
  10. OMEPRAZOLE [Concomitant]
     Active Substance: OMEPRAZOLE
     Indication: Prophylaxis of nausea and vomiting
     Dosage: 40 MG, SINGLE
     Route: 041
     Dates: start: 20211026, end: 20211026

REACTIONS (4)
  - Nausea [Unknown]
  - Vomiting [Unknown]
  - Dizziness [Unknown]
  - Sleep disorder [Unknown]

NARRATIVE: CASE EVENT DATE: 20211026
